FAERS Safety Report 22736747 (Version 2)
Quarter: 2024Q4

REPORT INFORMATION
  Report Type: Spontaneous
  Country: GB (occurrence: GB)
  Receive Date: 20230721
  Receipt Date: 20241030
  Transmission Date: 20250115
  Serious: Yes (Death, Hospitalization, Other)
  Sender: BRISTOL-MYERS SQUIBB COMPANY
  Company Number: GB-BRISTOL-MYERS SQUIBB COMPANY-2023-102203

PATIENT
  Age: 80 Year
  Sex: Female
  Weight: 74.4 kg

DRUGS (21)
  1. AZACITIDINE [Suspect]
     Active Substance: AZACITIDINE
     Indication: Acute myeloid leukaemia
     Dosage: 126 MG (ON DAYS 1-5 AND 8-9 ON EACH 21-DAY CYCLE)
     Route: 058
     Dates: start: 20221031, end: 20221101
  2. AZACITIDINE [Suspect]
     Active Substance: AZACITIDINE
     Dosage: 126 MG (ON DAYS 1-5 AND 8-9 ON EACH 21-DAY CYCLE)
     Route: 058
     Dates: start: 20221103, end: 20221108
  3. AZACITIDINE [Suspect]
     Active Substance: AZACITIDINE
     Dosage: 126 MG (ON DAYS 1-5 AND 8-9 ON EACH 21-DAY CYCLE)
     Route: 058
     Dates: start: 20221128, end: 20230106
  4. AZACITIDINE [Suspect]
     Active Substance: AZACITIDINE
     Dosage: 300 MG (ONE DOSE), GASTRO-RESISTANT TABLET
     Route: 048
     Dates: start: 20221205, end: 20221205
  5. AZACITIDINE [Suspect]
     Active Substance: AZACITIDINE
     Dosage: 126 MG (ON DAYS 1-5 AND 8-9 ON EACH 21-DAY CYCLE)
     Route: 058
     Dates: start: 20230109, end: 20230109
  6. AZACITIDINE [Suspect]
     Active Substance: AZACITIDINE
     Dosage: 126 MG (ON DAYS 1-5 AND 8-9 ON EACH 21-DAY CYCLE)
     Route: 058
     Dates: start: 20230110, end: 20230111
  7. POSACONAZOLE [Suspect]
     Active Substance: POSACONAZOLE
     Indication: Acute myeloid leukaemia
     Dosage: 300 MG (ONE DOSE), GASTRO-RESISTANT TABLET
     Route: 048
     Dates: start: 20221205, end: 20221205
  8. BECLOMETHASONE DIPROPIONATE [Concomitant]
     Active Substance: BECLOMETHASONE DIPROPIONATE
     Indication: Dyspnoea
     Dosage: 100 MG, BID
     Route: 048
  9. ALLOPURINOL [Concomitant]
     Active Substance: ALLOPURINOL
     Indication: Tumour lysis syndrome
     Dosage: 300 MG, TID
     Route: 048
     Dates: start: 20221027, end: 20221128
  10. AMITRIPTYLINE HYDROCHLORIDE [Concomitant]
     Active Substance: AMITRIPTYLINE HYDROCHLORIDE
     Indication: Sleep disorder
     Dosage: 20 MG, QD
     Route: 048
  11. BISOPROLOL [Concomitant]
     Active Substance: BISOPROLOL\BISOPROLOL FUMARATE
     Indication: Atrial fibrillation
     Dosage: 2.5 MG, QD
     Route: 048
     Dates: start: 20221014
  12. LANSOPRAZOLE [Concomitant]
     Active Substance: LANSOPRAZOLE
     Indication: Hernia
     Dosage: 30 MG, QD
  13. PLATELETS [Concomitant]
     Active Substance: HUMAN PLATELET, ALLOGENIC
     Indication: Product used for unknown indication
     Dosage: UNK
     Dates: start: 20221026
  14. HUMAN RED BLOOD CELL [Concomitant]
     Active Substance: HUMAN RED BLOOD CELL
     Indication: Product used for unknown indication
     Dosage: UNK
     Dates: start: 20220930
  15. ALBUTEROL [Concomitant]
     Active Substance: ALBUTEROL
     Indication: Asthma
     Dosage: 1 DOSAGE FORM
     Route: 048
  16. ACYCLOVIR [Concomitant]
     Active Substance: ACYCLOVIR
     Indication: Prophylaxis
     Dates: start: 202109
  17. ACYCLOVIR [Concomitant]
     Active Substance: ACYCLOVIR
     Dosage: 126 MG (75MG/M2) ON DAYS 1-5 AND 8-9 ON EACH 21-DAY CYCLE
     Dates: start: 20221103, end: 20221108
  18. ACYCLOVIR [Concomitant]
     Active Substance: ACYCLOVIR
     Dosage: 126 MG (75MG/M2) ON DAYS 1-5 AND 8-9 ON EACH 21-DAY CYCLE
     Dates: start: 20221128, end: 20230106
  19. ACYCLOVIR [Concomitant]
     Active Substance: ACYCLOVIR
     Dosage: 126 MG (75MG/M2) ON DAYS 1-5 AND 8-9 ON EACH 21-DAY CYCLE
     Dates: start: 20230109, end: 20230109
  20. ACYCLOVIR [Concomitant]
     Active Substance: ACYCLOVIR
     Dosage: 126 MG (75MG/M2) ON DAYS 1-5 AND 8-9 ON EACH 21-DAY CYCLE
     Dates: start: 20230110, end: 20230111
  21. ACYCLOVIR [Concomitant]
     Active Substance: ACYCLOVIR

REACTIONS (4)
  - Large intestine perforation [Fatal]
  - Klebsiella bacteraemia [Fatal]
  - Fall [Recovered/Resolved]
  - Febrile neutropenia [Recovered/Resolved]

NARRATIVE: CASE EVENT DATE: 20221108
